FAERS Safety Report 6029614-2 (Version None)
Quarter: 2009Q1

REPORT INFORMATION
  Report Type: 
  Country: None (occurrence: None)
  Receive Date: 20090107
  Receipt Date: 20081224
  Transmission Date: 20090719
  Serious: Yes (Other)
  Sender: FDA-Public Use
  Company Number: JP-PURDUE-MAG_2008_0000754

PATIENT
  Age: 80 Year
  Sex: Female

DRUGS (6)
  1. OXYCODONE HCL PR TABLET 10 MG [Suspect]
     Indication: CANCER PAIN
     Dosage: 10 MG, DAILY
     Route: 065
  2. NOVAMIN                            /00013301/ [Suspect]
     Indication: DRUG USE FOR UNKNOWN INDICATION
     Dosage: 3 TABLET, DAILY
     Route: 065
  3. PURSENNID                          /01627401/ [Concomitant]
     Indication: DRUG USE FOR UNKNOWN INDICATION
     Dosage: 2 DF, DAILY
     Route: 065
  4. PANTOSIN [Concomitant]
     Indication: DRUG USE FOR UNKNOWN INDICATION
     Dosage: 3 GRAM, DAILY
     Route: 065
  5. MAGNESIUM OXIDE [Concomitant]
     Indication: DRUG USE FOR UNKNOWN INDICATION
     Dosage: 1.5 GRAM, DAILY
     Route: 065
  6. CODEINE PHOSPHATE [Concomitant]
     Indication: DRUG USE FOR UNKNOWN INDICATION
     Dosage: 80 MG, DAILY
     Route: 065

REACTIONS (6)
  - ABDOMINAL DISTENSION [None]
  - CONSTIPATION [None]
  - MALAISE [None]
  - NAUSEA [None]
  - OVERDOSE [None]
  - PARKINSONISM [None]
